FAERS Safety Report 9689532 (Version 3)
Quarter: 2013Q4

REPORT INFORMATION
  Report Type: Spontaneous
  Country: US (occurrence: US)
  Receive Date: 20131115
  Receipt Date: 20131215
  Transmission Date: 20140711
  Serious: Yes (Death, Other)
  Sender: FDA-Public Use
  Company Number: US-AMGEN-USASP2013079331

PATIENT
  Age: 52 Year
  Sex: Female

DRUGS (3)
  1. ARANESP [Suspect]
     Indication: PRODUCT USED FOR UNKNOWN INDICATION
     Dosage: UNK
     Route: 058
  2. GEMZAR [Concomitant]
     Dosage: UNK
     Route: 065
     Dates: start: 20121114
  3. CISPLATIN [Concomitant]
     Dosage: UNK
     Route: 065
     Dates: start: 20121114

REACTIONS (4)
  - Death [Fatal]
  - Fibromyalgia [Unknown]
  - Urinary tract infection [Recovered/Resolved]
  - Haematuria [Recovered/Resolved]
